FAERS Safety Report 22287805 (Version 1)
Quarter: 2023Q2

REPORT INFORMATION
  Report Type: Report from Study
  Country: CA (occurrence: None)
  Receive Date: 20230505
  Receipt Date: 20230505
  Transmission Date: 20230721
  Serious: Yes (Death, Other)
  Sender: FDA-Public Use
  Company Number: 2023A103492

PATIENT
  Sex: Male

DRUGS (5)
  1. LYNPARZA [Suspect]
     Active Substance: OLAPARIB
     Indication: Prostate cancer
     Route: 048
     Dates: start: 20230322
  2. CALCIUM [Concomitant]
     Active Substance: CALCIUM
  3. LUPRON [Concomitant]
     Active Substance: LEUPROLIDE ACETATE
     Dosage: EVERY 4 MONTHS
  4. VITAMIN D [Concomitant]
     Active Substance: VITAMIN D NOS
  5. XGVA [Concomitant]

REACTIONS (2)
  - Death [Fatal]
  - Underdose [Unknown]
